FAERS Safety Report 6391978-8 (Version None)
Quarter: 2009Q4

REPORT INFORMATION
  Report Type: 
  Country: None (occurrence: None)
  Receive Date: 20091007
  Receipt Date: 20091002
  Transmission Date: 20100525
  Serious: Yes (Hospitalization)
  Sender: FDA-Public Use
  Company Number: B0592180A

PATIENT
  Age: 24 Year
  Sex: Male
  Weight: 75 kg

DRUGS (1)
  1. SERETIDE FORTE [Suspect]
     Route: 055
     Dates: start: 20090827, end: 20090828

REACTIONS (2)
  - ACCIDENTAL OVERDOSE [None]
  - SINUS TACHYCARDIA [None]
